FAERS Safety Report 8612516-2 (Version None)
Quarter: 2012Q3

REPORT INFORMATION
  Report Type: 
  Country: None (occurrence: None)
  Receive Date: 20120822
  Receipt Date: 20111017
  Transmission Date: 20120928
  Serious: No
  Sender: FDA-Public Use
  Company Number: US-ASTRAZENECA-2011SE59343

PATIENT
  Age: 45 Year
  Sex: Male

DRUGS (2)
  1. NEXIUM [Suspect]
     Indication: GASTROOESOPHAGEAL REFLUX DISEASE
     Route: 048
  2. SYMBICORT [Suspect]
     Route: 055

REACTIONS (5)
  - DYSPNOEA [None]
  - THERAPY CESSATION [None]
  - CHEST PAIN [None]
  - WHEEZING [None]
  - SLEEP APNOEA SYNDROME [None]
